FAERS Safety Report 4832604-6 (Version None)
Quarter: 2005Q4

REPORT INFORMATION
  Report Type: 
  Country: None (occurrence: None)
  Receive Date: 20051121
  Receipt Date: 20051109
  Transmission Date: 20060501
  Serious: Yes (Hospitalization)
  Sender: FDA-Public Use
  Company Number: US-JNJFOC-20051102615

PATIENT
  Sex: Male

DRUGS (5)
  1. INFLIXIMAB [Suspect]
     Indication: RHEUMATOID ARTHRITIS
     Route: 042
  2. METHOTREXATE [Concomitant]
  3. VERELAN [Concomitant]
  4. LORTAB [Concomitant]
  5. LORTAB [Concomitant]
     Dosage: 7.5/500, 4 IN 1 DAY

REACTIONS (7)
  - ABDOMINAL ABSCESS [None]
  - ABDOMINAL PAIN [None]
  - FISTULA [None]
  - GANGRENE [None]
  - INTESTINAL OBSTRUCTION [None]
  - INTESTINAL STRANGULATION [None]
  - RENAL FAILURE ACUTE [None]
